FAERS Safety Report 17692558 (Version 8)
Quarter: 2024Q3

REPORT INFORMATION
  Report Type: Spontaneous
  Country: US (occurrence: US)
  Receive Date: 20200422
  Receipt Date: 20240807
  Transmission Date: 20241017
  Serious: No
  Sender: VIIV
  Company Number: US-VIIV HEALTHCARE ULC-US2020AMR068404

PATIENT
  Sex: Male

DRUGS (2)
  1. DOVATO [Suspect]
     Active Substance: DOLUTEGRAVIR SODIUM\LAMIVUDINE
     Indication: HIV infection
     Dosage: UNK
     Dates: start: 202002, end: 202407
  2. ELASOMERAN [Suspect]
     Active Substance: ELASOMERAN
     Indication: COVID-19 prophylaxis
     Dosage: UNK
     Dates: start: 2021

REACTIONS (15)
  - Blood HIV RNA increased [Not Recovered/Not Resolved]
  - Stress [Unknown]
  - Condition aggravated [Unknown]
  - Mental disorder [Unknown]
  - Dizziness [Unknown]
  - Depressed mood [Unknown]
  - Multiple allergies [Recovered/Resolved]
  - Weight increased [Unknown]
  - Injection site pain [Recovered/Resolved]
  - Malaise [Not Recovered/Not Resolved]
  - Rhinorrhoea [Not Recovered/Not Resolved]
  - Nasopharyngitis [Not Recovered/Not Resolved]
  - Pathogen resistance [Not Recovered/Not Resolved]
  - Treatment noncompliance [Unknown]
  - Product dose omission issue [Unknown]

NARRATIVE: CASE EVENT DATE: 20210101
